FAERS Safety Report 21630497 (Version 1)
Quarter: 2022Q4

REPORT INFORMATION
  Report Type: Report from Study
  Country: TN (occurrence: TN)
  Receive Date: 20221123
  Receipt Date: 20221123
  Transmission Date: 20230113
  Serious: Yes (Other)
  Sender: FDA-Public Use
  Company Number: TN-SUN PHARMACEUTICAL INDUSTRIES LTD-2022R1-365102

PATIENT
  Age: 23 Year
  Sex: Female

DRUGS (3)
  1. BETAMETHASONE [Suspect]
     Active Substance: BETAMETHASONE
     Indication: Pustular psoriasis
     Dosage: UNK
     Route: 065
  2. PREDNISONE [Suspect]
     Active Substance: PREDNISONE
     Indication: Pustular psoriasis
     Dosage: 1 MILLIGRAM/KILOGRAM, DAILY
     Route: 065
  3. DAPSONE [Suspect]
     Active Substance: DAPSONE
     Indication: Pustular psoriasis
     Dosage: 100 MILLIGRAM, DAILY
     Route: 065

REACTIONS (4)
  - Anaemia [Unknown]
  - Exposure during pregnancy [Unknown]
  - Premature delivery [Unknown]
  - Therapy partial responder [Unknown]
